FAERS Safety Report 7555878-X (Version None)
Quarter: 2011Q2

REPORT INFORMATION
  Report Type: 
  Country: None (occurrence: None)
  Receive Date: 20110618
  Receipt Date: 20110606
  Transmission Date: 20111010
  Serious: Yes (Hospitalization, Other)
  Sender: FDA-Public Use
  Company Number: US-BAYER-201012020NA

PATIENT
  Age: 20 Year
  Sex: Female
  Weight: 91 kg

DRUGS (13)
  1. DOC-Q-LAX [Concomitant]
     Route: 048
     Dates: start: 20030526
  2. CEPHALEXIN [Concomitant]
     Route: 065
     Dates: start: 20030604
  3. PERCOCET [Concomitant]
     Dosage: 5MG/325MG
     Route: 065
     Dates: start: 20030816
  4. NAPROXEN SODIUM [Concomitant]
     Indication: UTERINE SPASM
     Dosage: 550 MG, BID
     Route: 048
     Dates: start: 20030526
  5. CLOTRIMAZOLE [Concomitant]
     Dosage: 1 %
     Dates: start: 20030604
  6. YASMIN [Suspect]
     Indication: ORAL CONTRACEPTION
     Route: 048
     Dates: start: 20030501, end: 20031201
  7. CEPHALEXIN [Concomitant]
     Route: 048
     Dates: start: 20030526
  8. FAMOTIDINE [Concomitant]
     Route: 048
     Dates: start: 20030820
  9. IBUPROFEN [Concomitant]
     Dosage: 800 MG, PRN
     Route: 065
     Dates: start: 20030604
  10. FERROUS SULFATE TAB [Concomitant]
     Route: 048
     Dates: start: 20030526
  11. DROSPIRENONE AND ETHINYL ESTRADIOL [Suspect]
     Indication: PRODUCT USED FOR UNKNOWN INDICATION
     Route: 048
  12. ACETAMINOPHEN W/ CODEINE [Concomitant]
     Route: 048
     Dates: start: 20030711
  13. FERROUS SULFATE TAB [Concomitant]
     Route: 048
     Dates: start: 20030526

REACTIONS (10)
  - BILE DUCT STONE [None]
  - GALLBLADDER DISORDER [None]
  - ABDOMINAL PAIN UPPER [None]
  - CHOLECYSTITIS CHRONIC [None]
  - MURPHY'S SIGN POSITIVE [None]
  - NAUSEA [None]
  - VOMITING [None]
  - CHOLECYSTITIS ACUTE [None]
  - BILIARY DILATATION [None]
  - GALLBLADDER ENLARGEMENT [None]
